FAERS Safety Report 9254192 (Version 2)
Quarter: 2013Q2

REPORT INFORMATION
  Report Type: Report from Study
  Country: US (occurrence: US)
  Receive Date: 20130425
  Receipt Date: 20130515
  Transmission Date: 20140414
  Serious: Yes (Hospitalization)
  Sender: FDA-Public Use
  Company Number: PHEH2013US009111

PATIENT
  Age: 43 Year
  Sex: Female
  Weight: 58.5 kg

DRUGS (14)
  1. TOBI [Suspect]
     Dosage: 300MG (1 AMPOULE) TWICE DAILY FOR 14 DAYS
  2. TOBI [Suspect]
     Dosage: UNK
  3. VITAMIN A [Concomitant]
     Dosage: 10000 U, UNK
  4. TOCOFEROL [Concomitant]
     Dosage: 1000 U, UNK
  5. ESSENTIALE//VITAMINS NOS [Concomitant]
     Dosage: UNK UKN, UNK
  6. ASCORBIC ACID [Concomitant]
     Dosage: 500 MG, UNK
  7. ZITHROMAX [Concomitant]
     Dosage: UNK UKN, UNK
  8. NEURONTIN [Concomitant]
     Dosage: 100 MG, UNK
  9. CYMBALTA [Concomitant]
     Dosage: 20 MG, UNK
  10. ZYPREXA [Concomitant]
     Dosage: 20 MG, UNK
  11. LEXAPRO [Concomitant]
     Dosage: 10 MG, UNK
  12. LUNESTA [Concomitant]
     Dosage: 1 MG, UNK
  13. ALBUTEROL [Concomitant]
     Dosage: 90 UG, UNK
  14. PULMICORT [Concomitant]
     Dosage: 180 UG, UNK

REACTIONS (1)
  - Pneumonia pseudomonas aeruginosa [Unknown]
